FAERS Safety Report 5160827-8 (Version None)
Quarter: 2006Q4

REPORT INFORMATION
  Report Type: 
  Country: None (occurrence: None)
  Receive Date: 20061121
  Receipt Date: 20061109
  Transmission Date: 20070319
  Serious: Yes (Other)
  Sender: FDA-Public Use
  Company Number: DE-2006-021527

PATIENT
  Age: 47 Year
  Sex: Male

DRUGS (3)
  1. BETAFERON (INTERFERON BETA - 1B) INJECTION, 250UG [Suspect]
     Indication: MULTIPLE SCLEROSIS
     Dosage: SUBCUTANEOUS
     Route: 058
     Dates: start: 20030201, end: 20060801
  2. METO-TABLINEN [Concomitant]
  3. IBUPROFEN [Concomitant]

REACTIONS (5)
  - CHILLS [None]
  - CUTANEOUS SARCOIDOSIS [None]
  - ERYTHEMA NODOSUM [None]
  - INJECTION SITE DISCOLOURATION [None]
  - INJECTION SITE PAIN [None]
